FAERS Safety Report 9163195 (Version 3)
Quarter: 2013Q1

REPORT INFORMATION
  Report Type: Spontaneous
  Country: CA (occurrence: CA)
  Receive Date: 20130314
  Receipt Date: 20130328
  Transmission Date: 20140127
  Serious: Yes (Other)
  Sender: FDA-Public Use
  Company Number: CA-GLAXOSMITHKLINE-A1014473A

PATIENT
  Age: 52 Year
  Sex: Female

DRUGS (1)
  1. FLOVENT [Suspect]
     Indication: PRODUCT USED FOR UNKNOWN INDICATION
     Dosage: 2PUFF THREE TIMES PER DAY
     Route: 055
     Dates: start: 20130302

REACTIONS (6)
  - Asthma [Unknown]
  - Chest discomfort [Not Recovered/Not Resolved]
  - Productive cough [Unknown]
  - Product quality issue [Unknown]
  - Hypersensitivity [Unknown]
  - Off label use [Unknown]
